FAERS Safety Report 22299156 (Version 2)
Quarter: 2023Q2

REPORT INFORMATION
  Report Type: Report from Study
  Country: DE (occurrence: DE)
  Receive Date: 20230509
  Receipt Date: 20230518
  Transmission Date: 20230721
  Serious: Yes (Hospitalization, Other)
  Sender: FDA-Public Use
  Company Number: DE-ABBVIE-4758859

PATIENT
  Age: 65 Year
  Sex: Male

DRUGS (17)
  1. CARBIDOPA\LEVODOPA [Suspect]
     Active Substance: CARBIDOPA\LEVODOPA
     Indication: Parkinson^s disease
     Dosage: MD: 4.0ML; CRD: 5.2ML/H; CRN: 5.0ML/H; ED: 2.0ML
     Route: 050
     Dates: start: 20190608
  2. CARBIDOPA\LEVODOPA [Suspect]
     Active Substance: CARBIDOPA\LEVODOPA
     Dosage: MD: 4.0ML; CRD: 5.2ML/H; CRN: 5.0ML/H; ED: 2.0ML
     Route: 050
     Dates: start: 20190708
  3. MIDODRINE HYDROCHLORIDE [Concomitant]
     Active Substance: MIDODRINE HYDROCHLORIDE
     Indication: Product used for unknown indication
  4. PANTOPRAZOLE SODIUM [Concomitant]
     Active Substance: PANTOPRAZOLE SODIUM
     Indication: Product used for unknown indication
  5. SOLIFENACIN [Concomitant]
     Active Substance: SOLIFENACIN
     Indication: Product used for unknown indication
  6. IBUPROFEN [Concomitant]
     Active Substance: IBUPROFEN
     Indication: Product used for unknown indication
  7. QUETIAPINE [Concomitant]
     Active Substance: QUETIAPINE
     Indication: Product used for unknown indication
  8. VITAMIN B12 [Concomitant]
     Active Substance: CYANOCOBALAMIN
     Indication: Product used for unknown indication
     Route: 058
  9. VITAMIN B6 [Concomitant]
     Active Substance: PYRIDOXINE HYDROCHLORIDE
     Indication: Product used for unknown indication
  10. MIRABEGRON [Concomitant]
     Active Substance: MIRABEGRON
     Indication: Product used for unknown indication
  11. VENLAFAXINE HYDROCHLORIDE [Concomitant]
     Active Substance: VENLAFAXINE HYDROCHLORIDE
     Indication: Product used for unknown indication
  12. PREGABALIN [Concomitant]
     Active Substance: PREGABALIN
     Indication: Product used for unknown indication
  13. PREGABALIN [Concomitant]
     Active Substance: PREGABALIN
     Indication: Product used for unknown indication
  14. FAMOTIDINE [Concomitant]
     Active Substance: FAMOTIDINE
     Indication: Product used for unknown indication
  15. MOVICOL [Concomitant]
     Active Substance: POLYETHYLENE GLYCOL 3350\POTASSIUM CHLORIDE\SODIUM BICARBONATE\SODIUM CHLORIDE
     Indication: Product used for unknown indication
     Dosage: TIME INTERVAL: 0.33333333 DAYS: BOTTLE
  16. CLOZAPINE [Concomitant]
     Active Substance: CLOZAPINE
     Indication: Product used for unknown indication
  17. CLOZAPINE [Concomitant]
     Active Substance: CLOZAPINE
     Indication: Product used for unknown indication

REACTIONS (30)
  - Abdominal abscess [Unknown]
  - Medical device site abscess [Unknown]
  - Abdominal pain [Recovered/Resolved]
  - Reduced facial expression [Unknown]
  - Complication associated with device [Recovered/Resolved]
  - Gaze palsy [Unknown]
  - Testis cancer [Unknown]
  - Vitamin B12 deficiency [Unknown]
  - Hallucination, tactile [Not Recovered/Not Resolved]
  - Hallucination, visual [Not Recovered/Not Resolved]
  - Helicobacter gastritis [Unknown]
  - Vitamin B complex deficiency [Unknown]
  - Cognitive disorder [Unknown]
  - Puncture site erythema [Unknown]
  - Gastrooesophageal reflux disease [Unknown]
  - Puncture site discharge [Unknown]
  - Polyneuropathy [Unknown]
  - Urinary incontinence [Not Recovered/Not Resolved]
  - Embedded device [Unknown]
  - Pain [Unknown]
  - Dysphagia [Unknown]
  - Puncture site reaction [Unknown]
  - Vitamin B6 deficiency [Unknown]
  - Muscle rigidity [Unknown]
  - Embedded device [Recovered/Resolved]
  - Fall [Unknown]
  - Stoma site pain [Unknown]
  - Dysarthria [Unknown]
  - Disability [Unknown]
  - Unevaluable event [Unknown]

NARRATIVE: CASE EVENT DATE: 20230427
